FAERS Safety Report 5194642-6 (Version None)
Quarter: 2006Q4

REPORT INFORMATION
  Report Type: 
  Country: None (occurrence: None)
  Receive Date: 20061222
  Receipt Date: 20061222
  Transmission Date: 20070319
  Serious: Yes (Life-Threatening)
  Sender: FDA-Public Use
  Company Number: None

PATIENT
  Age: 13 Year
  Sex: Male
  Weight: 45.3597 kg

DRUGS (2)
  1. CLINDAMYCIN [Suspect]
     Indication: STAPHYLOCOCCAL INFECTION
     Dates: start: 20051028, end: 20051110
  2. CLINDAMYCIN [Suspect]
     Dosage: INTRAVENOUSLY
     Route: 042

REACTIONS (1)
  - CLOSTRIDIAL INFECTION [None]
